FAERS Safety Report 9729440 (Version 1)
Quarter: 2013Q4

REPORT INFORMATION
  Report Type: Spontaneous
  Country: US (occurrence: US)
  Receive Date: 20131204
  Receipt Date: 20131204
  Transmission Date: 20140711
  Serious: No
  Sender: FDA-Public Use
  Company Number: US-GILEAD-2009-0021413

PATIENT
  Sex: Female
  Weight: 72.57 kg

DRUGS (12)
  1. LOSARTIN [Concomitant]
  2. ADULT ASPIRIN [Concomitant]
  3. LOVASTATIN [Concomitant]
  4. AMITRIPTYLINE [Concomitant]
  5. AMITRIPTYLINE [Concomitant]
  6. FLUOXETINE HCL [Concomitant]
  7. PRILOSEC [Concomitant]
  8. SLO-NIACIN [Concomitant]
  9. MULTIVITAMIN [Concomitant]
  10. NASAREL [Concomitant]
     Route: 045
  11. LETAIRIS [Suspect]
     Indication: PULMONARY ARTERIAL HYPERTENSION
     Route: 048
     Dates: start: 20090202
  12. ATENOLOL [Concomitant]

REACTIONS (2)
  - Fatigue [Unknown]
  - Anaemia [Unknown]
